FAERS Safety Report 14501154 (Version 1)
Quarter: 2018Q1

REPORT INFORMATION
  Report Type: Spontaneous
  Country: US (occurrence: US)
  Receive Date: 20180207
  Receipt Date: 20180207
  Transmission Date: 20180509
  Serious: No
  Sender: FDA-Public Use
  Company Number: US-AMGEN-USASP2017162137

PATIENT
  Age: 59 Year
  Sex: Female

DRUGS (1)
  1. NEULASTA [Suspect]
     Active Substance: PEGFILGRASTIM
     Indication: PRODUCT USED FOR UNKNOWN INDICATION
     Dosage: UNK
     Route: 065
     Dates: start: 20171002

REACTIONS (6)
  - Bone pain [Unknown]
  - Cognitive disorder [Not Recovered/Not Resolved]
  - Myalgia [Unknown]
  - White blood cell count abnormal [Unknown]
  - Wrong technique in product usage process [Unknown]
  - Accidental underdose [Unknown]

NARRATIVE: CASE EVENT DATE: 201710
